FAERS Safety Report 4316360-6 (Version None)
Quarter: 2004Q1

REPORT INFORMATION
  Report Type: 
  Country: None (occurrence: None)
  Receive Date: 20040311
  Receipt Date: 20040223
  Transmission Date: 20041129
  Serious: Yes (Life-Threatening, Hospitalization, Other)
  Sender: FDA-Public Use
  Company Number: 2003-DE-06494DE

PATIENT
  Age: 52 Year
  Sex: Female

DRUGS (1)
  1. AGGRENOX [Suspect]
     Indication: CEREBROVASCULAR INSUFFICIENCY
     Dosage: STRENGTH: DIPYRIDAMOLE 200 MG, PO
     Route: 048
     Dates: start: 20031218, end: 20031221

REACTIONS (8)
  - AGGRESSION [None]
  - AGITATION [None]
  - CONFUSIONAL STATE [None]
  - CONVULSION [None]
  - DYSGEUSIA [None]
  - HYPERHIDROSIS [None]
  - RETROGRADE AMNESIA [None]
  - SYNCOPE [None]
